FAERS Safety Report 8581266-3 (Version None)
Quarter: 2012Q3

REPORT INFORMATION
  Report Type: 
  Country: None (occurrence: None)
  Receive Date: 20120809
  Receipt Date: 20120806
  Transmission Date: 20120928
  Serious: Yes (Other)
  Sender: FDA-Public Use
  Company Number: PHHY2012DE039563

PATIENT
  Sex: Female

DRUGS (2)
  1. EXTAVIA [Suspect]
     Indication: MULTIPLE SCLEROSIS
     Dosage: 1 ML, QOD
     Route: 058
     Dates: start: 20111121
  2. FAMPRIDINE [Concomitant]
     Dates: start: 20120401

REACTIONS (3)
  - LIP SWELLING [None]
  - FOOD ALLERGY [None]
  - PRURITUS GENERALISED [None]
